FAERS Safety Report 4672407-9 (Version None)
Quarter: 2005Q2

REPORT INFORMATION
  Report Type: 
  Country: None (occurrence: None)
  Receive Date: 20050524
  Receipt Date: 20050513
  Transmission Date: 20051028
  Serious: Yes (Death, Life-Threatening, Hospitalization)
  Sender: FDA-Public Use
  Company Number: JP-JNJFOC-20050303999

PATIENT
  Sex: Female
  Weight: 58 kg

DRUGS (8)
  1. REMICADE [Suspect]
     Indication: RHEUMATOID ARTHRITIS
     Dosage: 9 INFUSIONS
     Route: 042
  2. RINDERON [Concomitant]
     Indication: RHEUMATOID ARTHRITIS
     Route: 049
  3. RHEUMATREX [Concomitant]
     Indication: RHEUMATOID ARTHRITIS
     Route: 049
  4. LOXONIN [Concomitant]
     Indication: RHEUMATOID ARTHRITIS
     Route: 049
  5. MOBIC [Concomitant]
     Indication: RHEUMATOID ARTHRITIS
     Route: 049
  6. TOFRANIL [Concomitant]
     Indication: DEPRESSION
     Route: 049
  7. ADALAT [Concomitant]
     Route: 049
  8. SIGMART [Concomitant]
     Indication: ANGINA PECTORIS
     Route: 049

REACTIONS (12)
  - ARRHYTHMIA [None]
  - DISSEMINATED INTRAVASCULAR COAGULATION [None]
  - FALL [None]
  - GASTROINTESTINAL HAEMORRHAGE [None]
  - HISTIOCYTOSIS HAEMATOPHAGIC [None]
  - JOINT SPRAIN [None]
  - PNEUMONIA ASPIRATION [None]
  - PNEUMONIA FUNGAL [None]
  - POSTOPERATIVE INFECTION [None]
  - PYELONEPHRITIS ACUTE [None]
  - RENAL FAILURE ACUTE [None]
  - SEPSIS [None]
